FAERS Safety Report 8608412-7 (Version None)
Quarter: 2012Q3

REPORT INFORMATION
  Report Type: 
  Country: None (occurrence: None)
  Receive Date: 20120808
  Receipt Date: 20120724
  Transmission Date: 20120928
  Serious: Yes (Hospitalization)
  Sender: FDA-Public Use
  Company Number: TPA2012A02561

PATIENT
  Sex: Male

DRUGS (1)
  1. FEBURIC (FEBUXOSTAT) [Suspect]
     Indication: HYPERURICAEMIA
     Dosage: 10 MG (10 MG, 1 IN 1 D), PER ORAL
     Route: 048
     Dates: start: 20120314, end: 20120420

REACTIONS (6)
  - MALAISE [None]
  - ALANINE AMINOTRANSFERASE INCREASED [None]
  - NAUSEA [None]
  - VOMITING [None]
  - ASPARTATE AMINOTRANSFERASE INCREASED [None]
  - DRUG-INDUCED LIVER INJURY [None]
